FAERS Safety Report 12311844 (Version 3)
Quarter: 2020Q2

REPORT INFORMATION
  Report Type: Spontaneous
  Country: US (occurrence: US)
  Receive Date: 20160427
  Receipt Date: 20200519
  Transmission Date: 20200713
  Serious: No
  Sender: FDA-Public Use
  Company Number: US-PFIZER INC-2016206690

PATIENT
  Age: 51 Year
  Sex: Male
  Weight: 70.31 kg

DRUGS (2)
  1. ADVIL [Suspect]
     Active Substance: IBUPROFEN
     Indication: BACK PAIN
     Dosage: 7 TO 8 PILLS IN A DAY (NOT EVERYDAY)
     Dates: start: 2009
  2. ADVIL [Suspect]
     Active Substance: IBUPROFEN
     Dosage: UNK
     Dates: start: 201509, end: 201510

REACTIONS (3)
  - Drug ineffective [Unknown]
  - Headache [Unknown]
  - Intentional overdose [Unknown]

NARRATIVE: CASE EVENT DATE: 2009
